FAERS Safety Report 14901679 (Version 2)
Quarter: 2018Q3

REPORT INFORMATION
  Report Type: Spontaneous
  Country: US (occurrence: US)
  Receive Date: 20180516
  Receipt Date: 20180814
  Transmission Date: 20181010
  Serious: No
  Sender: FDA-Public Use
  Company Number: US-BIOGEN-2017BI00447466

PATIENT
  Age: 44 Year
  Sex: Female

DRUGS (2)
  1. TECFIDERA [Suspect]
     Active Substance: DIMETHYL FUMARATE
     Indication: MULTIPLE SCLEROSIS
     Dosage: MAINTENANCE DOSE
     Route: 048
     Dates: start: 2015
  2. TECFIDERA [Suspect]
     Active Substance: DIMETHYL FUMARATE
     Dosage: MAINTENANCE DOSE
     Route: 065
     Dates: start: 2016

REACTIONS (7)
  - Rash macular [Unknown]
  - Fatigue [Unknown]
  - Nausea [Recovered/Resolved]
  - Burning sensation [Unknown]
  - Influenza [Unknown]
  - Suture related complication [Unknown]
  - Flushing [Unknown]

NARRATIVE: CASE EVENT DATE: 2015
